FAERS Safety Report 8432165-9 (Version None)
Quarter: 2012Q2

REPORT INFORMATION
  Report Type: 
  Country: None (occurrence: None)
  Receive Date: 20120613
  Receipt Date: 20120606
  Transmission Date: 20120825
  Serious: Yes (Hospitalization)
  Sender: FDA-Public Use
  Company Number: PHHY2012FR030847

PATIENT
  Age: 43 Year
  Sex: Male

DRUGS (4)
  1. ACETAMINOPHEN [Concomitant]
  2. EXTAVIA [Suspect]
     Dosage: 1 ML, QOD FOR 2 AND HALF MONTHS
     Dates: end: 20120405
  3. ACETAMINOPHEN [Concomitant]
  4. EXTAVIA [Suspect]
     Dosage: 0.75 ML, UNK
     Dates: start: 20120405

REACTIONS (11)
  - MASS [None]
  - INJECTION SITE SWELLING [None]
  - INJECTION SITE HAEMATOMA [None]
  - INJECTION SITE ERYTHEMA [None]
  - INJECTION SITE PAIN [None]
  - RESPIRATORY DISORDER [None]
  - FEELING ABNORMAL [None]
  - INJECTION SITE DISCOLOURATION [None]
  - PAIN IN EXTREMITY [None]
  - CHEST PAIN [None]
  - MULTIPLE SCLEROSIS RELAPSE [None]
